FAERS Safety Report 7475557-7 (Version None)
Quarter: 2011Q2

REPORT INFORMATION
  Report Type: 
  Country: None (occurrence: None)
  Receive Date: 20110512
  Receipt Date: 20110504
  Transmission Date: 20111010
  Serious: Yes (Hospitalization, Other)
  Sender: FDA-Public Use
  Company Number: CA-BAXTER-2011BH004764

PATIENT
  Age: 86 Year
  Sex: Female
  Weight: 64 kg

DRUGS (21)
  1. GAMMAGARD LIQUID [Suspect]
     Route: 065
     Dates: start: 20110115, end: 20110115
  2. PLATELETS [Concomitant]
     Dates: start: 20110116, end: 20110119
  3. LIPITOR [Concomitant]
  4. DETROL [Concomitant]
     Dates: start: 20110101
  5. PREDNISONE [Concomitant]
     Dates: start: 20110101
  6. COLECALCIFEROL [Concomitant]
     Dates: start: 20110101
  7. CYCLOKAPRON [Concomitant]
     Dates: start: 20110101
  8. GAMMAGARD LIQUID [Suspect]
     Indication: THROMBOCYTOPENIA
     Route: 065
     Dates: start: 20110114, end: 20110115
  9. SYNTHROID [Concomitant]
  10. ACTONEL [Concomitant]
     Dates: start: 20110101
  11. METFORMIN HCL [Concomitant]
  12. TENORMIN [Concomitant]
  13. HUMALOG [Concomitant]
  14. LASIX [Concomitant]
     Dates: start: 20110101
  15. GAMMAGARD LIQUID [Suspect]
     Indication: SECONDARY IMMUNODEFICIENCY
     Route: 065
     Dates: start: 20110114, end: 20110115
  16. CALCIUM [Concomitant]
  17. PANTOPRAZOLE SODIUM [Concomitant]
     Dates: start: 20110101
  18. GAMMAGARD LIQUID [Suspect]
     Route: 065
     Dates: start: 20110115, end: 20110115
  19. FOSINOPRIL SODIUM [Concomitant]
  20. VITAMIN D [Concomitant]
  21. MAALOX /NET/ [Concomitant]
     Dates: start: 20110101

REACTIONS (2)
  - HAEMOLYSIS [None]
  - DIABETIC COMPLICATION [None]
